FAERS Safety Report 8849493 (Version 1)
Quarter: 2012Q4

REPORT INFORMATION
  Report Type: 
  Country: US (occurrence: US)
  Receive Date: 20121019
  Receipt Date: 20121019
  Transmission Date: 20130627
  Serious: Yes (Hospitalization, Other)
  Sender: FDA-Public Use
  Company Number: US-PFIZER INC-HQWYE652308OCT04

PATIENT
  Age: 60 Year
  Sex: Female
  Weight: 53 kg

DRUGS (17)
  1. PREMPRO [Suspect]
     Indication: HORMONE REPLACEMENT THERAPY
     Dosage: UNK
     Route: 048
  2. PREMARIN [Suspect]
     Indication: MENOPAUSE
     Dosage: UNK
     Route: 067
     Dates: start: 1990, end: 2001
  3. PREMARIN [Suspect]
     Indication: OSTEOPOROSIS PROPHYLAXIS
  4. PREMARIN [Suspect]
     Indication: HORMONE REPLACEMENT THERAPY
  5. PREMARIN [Suspect]
     Indication: HORMONE REPLACEMENT THERAPY
     Dosage: UNK
     Route: 048
     Dates: start: 1995, end: 2007
  6. PROVERA [Suspect]
     Indication: MENOPAUSE
     Dosage: UNK
     Route: 048
     Dates: start: 1990, end: 2001
  7. PROVERA [Suspect]
     Indication: OSTEOPOROSIS
  8. PROVERA [Suspect]
     Indication: OSTEOPOROSIS PROPHYLAXIS
  9. PROVERA [Suspect]
     Indication: HORMONE REPLACEMENT THERAPY
  10. PREMPHASE [Suspect]
     Indication: MENOPAUSE
     Dosage: UNK
     Route: 048
     Dates: start: 1990, end: 2001
  11. PREMPHASE [Suspect]
     Indication: OSTEOPOROSIS PROPHYLAXIS
  12. PREMPHASE [Suspect]
     Indication: HORMONE REPLACEMENT THERAPY
  13. MEDROXYPROGESTERONE ACETATE [Suspect]
     Indication: HORMONE REPLACEMENT THERAPY
     Dosage: UNK
     Route: 048
     Dates: start: 1999, end: 2000
  14. ESTRATEST [Suspect]
     Indication: HORMONE REPLACEMENT THERAPY
     Dosage: UNK
     Route: 048
     Dates: start: 2000
  15. MINIPRESS [Concomitant]
     Indication: HYPERTENSION
     Dosage: UNK
     Dates: start: 1973
  16. ATENOLOL [Concomitant]
     Indication: HYPERTENSION
     Dosage: UNK
     Dates: start: 1973
  17. LIPITOR [Concomitant]
     Indication: BLOOD CHOLESTEROL
     Dosage: UNK
     Dates: start: 1999

REACTIONS (1)
  - Breast cancer metastatic [Unknown]
